FAERS Safety Report 7797509 (Version 7)
Quarter: 2012Q4

REPORT INFORMATION
  Report Type: Report from Study
  Country: JP (occurrence: JP)
  Receive Date: 20110203
  Receipt Date: 20121005
  Transmission Date: 20130627
  Serious: Yes (Death, Hospitalization, Other)
  Sender: FDA-Public Use
  Company Number: PHHY2011JP06264

PATIENT
  Age: 66 Year
  Sex: Female
  Weight: 41 kg

DRUGS (15)
  1. AFINITOR [Suspect]
     Indication: RENAL CELL CARCINOMA
     Dosage: 10 mg, daily
     Route: 048
     Dates: start: 20101126, end: 20110123
  2. SUNITINIB MALATE [Concomitant]
     Indication: METASTATIC RENAL CELL CARCINOMA
     Dosage: 50 mg, UNK
     Route: 048
     Dates: start: 20100618, end: 20101117
  3. SORAFENIB TOSILATE [Concomitant]
     Indication: METASTATIC RENAL CELL CARCINOMA
     Dosage: 400 mg, UNK
     Route: 048
     Dates: start: 20091209, end: 20100519
  4. RHYTHMY [Concomitant]
     Indication: INSOMNIA
     Dosage: 1 mg, UNK
     Route: 048
     Dates: start: 20101126
  5. PRIMPERAN [Concomitant]
     Indication: METASTATIC RENAL CELL CARCINOMA
     Dosage: 15 mg, UNK
     Route: 048
     Dates: start: 20101126, end: 20101128
  6. PREDONINE [Concomitant]
     Indication: ADRENAL INSUFFICIENCY
     Dosage: 7.5 mg, UNK
     Route: 048
     Dates: start: 20101126
  7. ARTIST [Concomitant]
     Indication: HYPERTENSION
     Dosage: 5 mg, UNK
     Route: 048
     Dates: start: 20101126
  8. URSO [Concomitant]
     Dosage: 300 mg, UNK
     Route: 048
     Dates: start: 20101126
  9. GASTER [Concomitant]
     Dosage: 20 mg, UNK
     Route: 048
     Dates: start: 20101126
  10. LOXONIN [Concomitant]
     Indication: METASTATIC RENAL CELL CARCINOMA
     Dosage: 180 mg, UNK
     Route: 048
     Dates: start: 20101126
  11. DEPAS [Concomitant]
     Indication: INSOMNIA
     Dosage: 1 mg, UNK
     Route: 048
     Dates: start: 20101126
  12. OXYCONTIN [Concomitant]
     Indication: METASTATIC RENAL CELL CARCINOMA
     Dosage: 20 mg, UNK
     Route: 048
     Dates: start: 20101126
  13. FOLIAMIN [Concomitant]
     Indication: ANAEMIA
     Dosage: 10 mg, UNK
     Route: 048
     Dates: start: 20101126
  14. MAGLAX [Concomitant]
  15. OXINORM [Concomitant]

REACTIONS (10)
  - Neoplasm progression [Fatal]
  - Malignant neoplasm progression [Fatal]
  - C-reactive protein increased [Fatal]
  - Gastrointestinal perforation [Unknown]
  - Peritonitis [Not Recovered/Not Resolved]
  - Dyspnoea [Unknown]
  - Abdominal pain [Not Recovered/Not Resolved]
  - Abdominal rigidity [Not Recovered/Not Resolved]
  - Abdominal tenderness [Not Recovered/Not Resolved]
  - Anaemia [Not Recovered/Not Resolved]
